FAERS Safety Report 6768324-0 (Version None)
Quarter: 2010Q2

REPORT INFORMATION
  Report Type: 
  Country: None (occurrence: None)
  Receive Date: 20100610
  Receipt Date: 20100526
  Transmission Date: 20101027
  Serious: Yes (Other)
  Sender: FDA-Public Use
  Company Number: GB-DEXPHARM-20100763

PATIENT
  Age: 67 Year
  Sex: Male

DRUGS (9)
  1. OMEPRAZOLE [Suspect]
     Indication: GASTRIC ULCER
     Dosage: DOSE: 40 MG MILLIGRAM(S) SEP. DOSAGES / INTERVAL: 1 IN 1 DAY ORAL
     Route: 048
     Dates: start: 20100504, end: 20100511
  2. METOCLOPRAMIDE [Suspect]
     Indication: NAUSEA
     Dosage: DOSE: 10 MG MILLIGRAM(S) SEP. DOSAGES / INTERVAL: 3 IN 1 DAY ORAL
     Route: 048
     Dates: start: 20100504, end: 20100511
  3. ASPIRIN [Concomitant]
  4. ENOXAPARIN SODIUM [Concomitant]
  5. IBUPROFEN [Concomitant]
  6. ACETAMINOPHEN [Concomitant]
  7. PROPRANOLOL [Concomitant]
  8. RAMIPRIL [Concomitant]
  9. TRAMADOL [Concomitant]

REACTIONS (5)
  - AGITATION [None]
  - CONFUSIONAL STATE [None]
  - HALLUCINATION, VISUAL [None]
  - HEAD INJURY [None]
  - INTENTIONAL SELF-INJURY [None]
